FAERS Safety Report 19481124 (Version 2)
Quarter: 2021Q3

REPORT INFORMATION
  Report Type: Report from Study
  Country: None (occurrence: ZA)
  Receive Date: 20210630
  Receipt Date: 20210701
  Transmission Date: 20211014
  Serious: Yes (Other)
  Sender: FDA-Public Use
  Company Number: ZA-ABBVIE-21K-143-3971873-00

PATIENT
  Sex: Female

DRUGS (4)
  1. ARCOXIA [Concomitant]
     Active Substance: ETORICOXIB
     Indication: PAIN
     Dosage: 1 DAILY
     Route: 048
  2. HUMIRA [Suspect]
     Active Substance: ADALIMUMAB
     Indication: ANKYLOSING SPONDYLITIS
     Route: 058
     Dates: start: 20200803
  3. MYPROCAM [Concomitant]
     Active Substance: CYCLOBENZAPRINE HYDROCHLORIDE
     Indication: PAIN
     Route: 048
  4. LANSOLOC [Concomitant]
     Active Substance: LANSOPRAZOLE
     Indication: FLATULENCE
     Dosage: 1 DAILY
     Route: 048

REACTIONS (1)
  - Thyroid neoplasm [Not Recovered/Not Resolved]
